FAERS Safety Report 4322898-8 (Version None)
Quarter: 2004Q1

REPORT INFORMATION
  Report Type: 
  Country: None (occurrence: None)
  Receive Date: 20040324
  Receipt Date: 20040317
  Transmission Date: 20041129
  Serious: Yes (Hospitalization)
  Sender: FDA-Public Use
  Company Number: WAES 0403USA01717

PATIENT
  Age: 77 Year
  Sex: Male

DRUGS (2)
  1. CANDESARTAN CILEXETIL [Concomitant]
     Route: 048
     Dates: end: 20040101
  2. COZAAR [Suspect]
     Route: 048
     Dates: start: 20040101, end: 20040316

REACTIONS (3)
  - BLOOD CREATININE INCREASED [None]
  - ELECTROCARDIOGRAM ABNORMAL [None]
  - HYPERKALAEMIA [None]
